FAERS Safety Report 13189876 (Version 3)
Quarter: 2017Q1

REPORT INFORMATION
  Report Type: Report from Study
  Country: CO (occurrence: CO)
  Receive Date: 20170206
  Receipt Date: 20170320
  Transmission Date: 20170428
  Serious: Yes (Hospitalization, Other)
  Sender: FDA-Public Use
  Company Number: CO-JNJFOC-20161218936

PATIENT
  Age: 69 Year
  Sex: Male
  Weight: 80 kg

DRUGS (3)
  1. LOSARTAN. [Concomitant]
     Active Substance: LOSARTAN
     Route: 065
  2. LOSARTAN. [Concomitant]
     Active Substance: LOSARTAN
     Dosage: A HALF TABLET IN THE MORNING AND HALF TABLET AT THE AFTERNOON.
     Route: 065
  3. IMBRUVICA [Suspect]
     Active Substance: IBRUTINIB
     Indication: MANTLE CELL LYMPHOMA
     Route: 048
     Dates: start: 20161218

REACTIONS (8)
  - Hospitalisation [Unknown]
  - Nausea [Recovering/Resolving]
  - Night sweats [Recovering/Resolving]
  - Vitamin D deficiency [Recovering/Resolving]
  - Blood triglycerides abnormal [Recovering/Resolving]
  - Hypotension [Recovering/Resolving]
  - Herpes zoster [Recovering/Resolving]
  - Nasopharyngitis [Not Recovered/Not Resolved]

NARRATIVE: CASE EVENT DATE: 20161218
